FAERS Safety Report 15454327 (Version 1)
Quarter: 2018Q4

REPORT INFORMATION
  Report Type: Spontaneous
  Country: CA (occurrence: CA)
  Receive Date: 20181002
  Receipt Date: 20181002
  Transmission Date: 20190204
  Serious: Yes (Other)
  Sender: FDA-Public Use
  Company Number: CA-ORION CORPORATION ORION PHARMA-TREX2018-2786

PATIENT
  Age: 80 Year
  Sex: Male
  Weight: 72.56 kg

DRUGS (9)
  1. ROSUVASTATIN. [Concomitant]
     Active Substance: ROSUVASTATIN
     Route: 065
  2. DIGOXIN. [Concomitant]
     Active Substance: DIGOXIN
     Route: 065
  3. FOLIC ACID. [Concomitant]
     Active Substance: FOLIC ACID
     Route: 065
  4. LEVODOPA [Concomitant]
     Active Substance: LEVODOPA
     Route: 065
  5. METHOTREXATE (TRADE NAME UNKNOWN) [Suspect]
     Active Substance: METHOTREXATE
     Indication: PRODUCT USED FOR UNKNOWN INDICATION
     Dosage: LOW DOSE
     Route: 065
  6. IMODIUM [Concomitant]
     Active Substance: LOPERAMIDE HYDROCHLORIDE
     Route: 065
  7. PANTOPRAZOLE [Concomitant]
     Active Substance: PANTOPRAZOLE
     Route: 065
  8. BISOPROLOL [Concomitant]
     Active Substance: BISOPROLOL
     Route: 065
  9. RIVAROXABAN [Concomitant]
     Active Substance: RIVAROXABAN
     Route: 065

REACTIONS (3)
  - Colitis ulcerative [Unknown]
  - Rectal haemorrhage [Unknown]
  - Aphonia [Not Recovered/Not Resolved]
